FAERS Safety Report 22170187 (Version 1)
Quarter: 2023Q2

REPORT INFORMATION
  Report Type: Spontaneous
  Country: CA (occurrence: None)
  Receive Date: 20230404
  Receipt Date: 20230404
  Transmission Date: 20230721
  Serious: Yes (Other)
  Sender: FDA-Public Use
  Company Number: 2023A072225

PATIENT
  Age: 55 Year
  Sex: Female

DRUGS (12)
  1. PULMICORT TURBUHALER [Suspect]
     Active Substance: BUDESONIDE
     Indication: Dyspnoea
     Dosage: 2 EVERY 1 DAYS
     Route: 055
  2. PULMICORT TURBUHALER [Suspect]
     Active Substance: BUDESONIDE
     Indication: Cough
     Dosage: 2 EVERY 1 DAYS
     Route: 055
  3. ASPIRIN [Concomitant]
     Active Substance: ASPIRIN
  4. CLONIDINE [Concomitant]
     Active Substance: CLONIDINE
  5. FERROUS SULFATE [Concomitant]
     Active Substance: FERROUS SULFATE
  6. HYDROXYCHLOROQUINE [Concomitant]
     Active Substance: HYDROXYCHLOROQUINE
  7. METHOTREXATE [Concomitant]
     Active Substance: METHOTREXATE
  8. OMEPRAZOLE [Concomitant]
     Active Substance: OMEPRAZOLE
  9. RAMIPRIL [Concomitant]
     Active Substance: RAMIPRIL
  10. ROSUVASTATIN [Concomitant]
     Active Substance: ROSUVASTATIN
  11. SEMAGLUTIDE [Concomitant]
     Active Substance: SEMAGLUTIDE
  12. TRESIBA [Concomitant]
     Active Substance: INSULIN DEGLUDEC

REACTIONS (2)
  - Swelling [Recovered/Resolved]
  - Swelling face [Recovered/Resolved]
